FAERS Safety Report 9353479 (Version 2)
Quarter: 2013Q4

REPORT INFORMATION
  Report Type: Spontaneous
  Country: US (occurrence: US)
  Receive Date: 20130618
  Receipt Date: 20131023
  Transmission Date: 20140711
  Serious: Yes (Other)
  Sender: FDA-Public Use
  Company Number: US-009507513-1305USA014985

PATIENT
  Sex: Male
  Weight: 81.6 kg

DRUGS (7)
  1. VICTRELIS [Suspect]
     Indication: HEPATITIS C
     Dosage: 800 MG, TID
     Route: 048
     Dates: start: 20130311
  2. PEGASYS [Suspect]
     Dosage: UNK, QW
     Route: 058
  3. PROGRAF [Concomitant]
     Indication: IMMUNOSUPPRESSION
     Dosage: 0.5 MG, EVERY 4 DAYS
     Route: 048
  4. VITAMINS (UNSPECIFIED) [Concomitant]
     Dosage: 1 PILL DAILY
     Route: 048
  5. MAGNESIUM (UNSPECIFIED) (+) PROTEIN (UNSPECIFIED) [Concomitant]
     Dosage: 1 DAILY
     Route: 048
  6. ASPIRIN [Concomitant]
     Dosage: 81MG DAILY
     Route: 048
  7. REBETOL [Concomitant]
     Dosage: 400 MG, BID
     Route: 048

REACTIONS (5)
  - Liver transplant [Unknown]
  - Hepatic cirrhosis [Unknown]
  - Fatigue [Not Recovered/Not Resolved]
  - Hepatic cirrhosis [Unknown]
  - Constipation [Unknown]
